FAERS Safety Report 9857983 (Version 3)
Quarter: 2014Q1

REPORT INFORMATION
  Report Type: Report from Study
  Country: DE (occurrence: DE)
  Receive Date: 20140131
  Receipt Date: 20140324
  Transmission Date: 20141002
  Serious: Yes (Hospitalization)
  Sender: FDA-Public Use
  Company Number: DE-ROCHE-1330044

PATIENT
  Age: 75 Year
  Sex: Female
  Weight: 71 kg

DRUGS (5)
  1. PERTUZUMAB [Suspect]
     Indication: OVARIAN CANCER
     Dosage: LOADING DOSE
     Route: 042
     Dates: start: 20131205, end: 20131205
  2. PERTUZUMAB [Suspect]
     Dosage: MAINTENANCE DOSE , LAST DOSE (420MG) PRIOR TO SAE: 16/JAN/2014
     Route: 042
  3. GEMCITABINE HYDROCHLORIDE [Suspect]
     Indication: OVARIAN CANCER
     Dosage: DAY 1 AND DAY 8, LAST DOSE (1920 MG) PRIOR TO THE SAE: 16/JAN/2014
     Route: 042
     Dates: start: 20131205
  4. RAMIPRIL [Concomitant]
     Route: 065
     Dates: start: 2007
  5. VERAPAMIL [Concomitant]
     Route: 065
     Dates: start: 2007

REACTIONS (3)
  - General physical health deterioration [Recovered/Resolved]
  - Abdominal pain upper [Recovered/Resolved]
  - Ascites [Not Recovered/Not Resolved]
